FAERS Safety Report 21713683 (Version 1)
Quarter: 2022Q4

REPORT INFORMATION
  Report Type: Spontaneous
  Country: US (occurrence: US)
  Receive Date: 20221212
  Receipt Date: 20221212
  Transmission Date: 20230113
  Serious: No
  Sender: FDA-Public Use
  Company Number: US-ORG100016242-2022000302

PATIENT
  Sex: Male

DRUGS (2)
  1. EXPAREL [Suspect]
     Active Substance: BUPIVACAINE
     Indication: Transversus abdominis plane block
     Dosage: CLOSE TO MAX DOSE, GIVEN BILATERALLY WITH HALF ON EACH SIDE IN 1:2 RATIO WITH BUPIVACAINE
     Dates: start: 20220209, end: 20220209
  2. BUPIVACAINE [Suspect]
     Active Substance: BUPIVACAINE
     Indication: Transversus abdominis plane block
     Dosage: GIVEN BILATERALLY WITH HALF ON EACH SIDE IN ADMIXTURE WITH EXPAREL
     Dates: start: 20220209, end: 20220209

REACTIONS (1)
  - Drug ineffective [Unknown]
